FAERS Safety Report 4713857-1 (Version None)
Quarter: 2005Q3

REPORT INFORMATION
  Report Type: 
  Country: None (occurrence: None)
  Receive Date: 20050712
  Receipt Date: 20050629
  Transmission Date: 20060218
  Serious: Yes (Other)
  Sender: FDA-Public Use
  Company Number: 2005077877

PATIENT
  Age: 15 Year
  Sex: Female
  Weight: 63.5036 kg

DRUGS (5)
  1. GEODON [Suspect]
     Indication: DELUSION
     Dosage: 40 MG (40 MG, 1 IN 1 D), ORAL
     Route: 048
     Dates: start: 20050310, end: 20050516
  2. GEODON [Suspect]
     Indication: MAJOR DEPRESSION
     Dosage: 40 MG (40 MG, 1 IN 1 D), ORAL
     Route: 048
     Dates: start: 20050310, end: 20050516
  3. BENADRYL [Suspect]
     Indication: EYE ROLLING
     Dosage: 50 MG (25 MG, 1 IN 1 D), ORAL
     Route: 048
     Dates: start: 20050401, end: 20050501
  4. BENADRYL [Suspect]
     Indication: TREMOR
     Dosage: 50 MG (25 MG, 1 IN 1 D), ORAL
     Route: 048
     Dates: start: 20050401, end: 20050501
  5. DULOXETINE HYDROCHLORIDE (DULOXETINE HYDROCHLORIDE) [Suspect]
     Indication: DEPRESSION
     Dosage: ORAL
     Route: 048
     Dates: start: 20050512, end: 20050516

REACTIONS (13)
  - AGITATION [None]
  - CHEST PAIN [None]
  - CONDITION AGGRAVATED [None]
  - CONVULSION [None]
  - DEPRESSION [None]
  - DRUG INEFFECTIVE [None]
  - DRUG WITHDRAWAL SYNDROME [None]
  - EYE ROLLING [None]
  - FEELING ABNORMAL [None]
  - LOSS OF CONSCIOUSNESS [None]
  - RESTLESSNESS [None]
  - SOMNOLENCE [None]
  - TREMOR [None]
